FAERS Safety Report 8007210 (Version 4)
Quarter: 2013Q1

REPORT INFORMATION
  Report Type: Spontaneous
  Country: US (occurrence: US)
  Receive Date: 20110624
  Receipt Date: 20130315
  Transmission Date: 20140127
  Serious: Yes (Hospitalization)
  Sender: FDA-Public Use
  Company Number: US-BIOGENIDEC-2011BI022873

PATIENT
  Age: 35 Year
  Sex: Male

DRUGS (3)
  1. TYSABRI [Suspect]
     Indication: MULTIPLE SCLEROSIS
     Route: 042
     Dates: start: 20080529
  2. PROZAC [Concomitant]
     Indication: DEPRESSION
  3. LEXIPRO [Concomitant]
     Indication: DEPRESSION

REACTIONS (4)
  - Drug specific antibody present [Unknown]
  - Appendicectomy [Recovered/Resolved]
  - Convulsion [Recovered/Resolved]
  - Akathisia [Recovered/Resolved]
